FAERS Safety Report 4902567-3 (Version None)
Quarter: 2006Q1

REPORT INFORMATION
  Report Type: 
  Country: None (occurrence: None)
  Receive Date: 20060202
  Receipt Date: 20060120
  Transmission Date: 20060701
  Serious: Yes (Other)
  Sender: FDA-Public Use
  Company Number: 2006012152

PATIENT
  Sex: Male
  Weight: 95 kg

DRUGS (4)
  1. CELEBREX [Suspect]
     Indication: ARTHRALGIA
     Dosage: 200 MG (200 MG, 1 IN 1 D), ORAL
     Route: 048
     Dates: end: 20030401
  2. SIMVASTATIN [Suspect]
     Indication: ILL-DEFINED DISORDER
  3. BENDROFLUMETHIAZIDE (BENDROFLUMETHIAZIDE) [Suspect]
     Indication: ILL-DEFINED DISORDER
     Dosage: 2.5 MG
  4. BETALOC (METOPROLOL TARTRATE) [Concomitant]

REACTIONS (2)
  - BLOOD PRESSURE INCREASED [None]
  - DEHYDRATION [None]
